FAERS Safety Report 7042031-1 (Version None)
Quarter: 2010Q4

REPORT INFORMATION
  Report Type: 
  Country: None (occurrence: None)
  Receive Date: 20101013
  Receipt Date: 20091221
  Transmission Date: 20110411
  Serious: No
  Sender: FDA-Public Use
  Company Number: US-ASTRAZENECA-2009SE32962

PATIENT
  Age: 52 Year
  Sex: Male

DRUGS (2)
  1. SYMBICORT [Suspect]
     Indication: ASTHMA
     Dosage: 320 MCG
     Route: 055
     Dates: start: 20080901
  2. SIMVASTATIN [Concomitant]

REACTIONS (1)
  - PANCREATITIS [None]
